FAERS Safety Report 24835057 (Version 2)
Quarter: 2025Q1

REPORT INFORMATION
  Report Type: Report from Study
  Country: US (occurrence: US)
  Receive Date: 20250113
  Receipt Date: 20250218
  Transmission Date: 20250409
  Serious: No
  Sender: Unknown Manufacturer
  Company Number: US-MIRUM PHARMACEUTICALS, INC.-US-MIR-24-01089

PATIENT

DRUGS (2)
  1. LIVMARLI [Suspect]
     Active Substance: MARALIXIBAT CHLORIDE
     Indication: Congenital absence of bile ducts
     Dosage: 0.3 MILLILITER, QD
     Route: 065
     Dates: start: 2024
  2. LIVMARLI [Suspect]
     Active Substance: MARALIXIBAT CHLORIDE
     Route: 065
     Dates: start: 2024

REACTIONS (2)
  - Blood bilirubin increased [Not Recovered/Not Resolved]
  - Off label use [Unknown]

NARRATIVE: CASE EVENT DATE: 20240101
